FAERS Safety Report 8662063 (Version 2)
Quarter: 2013Q4

REPORT INFORMATION
  Report Type: Spontaneous
  Country: PL (occurrence: PL)
  Receive Date: 20120712
  Receipt Date: 20131017
  Transmission Date: 20140711
  Serious: Yes (Other)
  Sender: FDA-Public Use
  Company Number: PL-ROCHE-1005561

PATIENT
  Age: 73 Year
  Sex: Female
  Weight: 61 kg

DRUGS (9)
  1. ROACTEMRA [Suspect]
     Indication: RHEUMATOID ARTHRITIS
     Dosage: 8 MG/KG.
     Route: 042
     Dates: start: 20110704, end: 20120104
  2. ROACTEMRA [Suspect]
     Route: 042
     Dates: start: 20110803
  3. ROACTEMRA [Suspect]
     Route: 042
     Dates: start: 20110902, end: 20120627
  4. ROACTEMRA [Suspect]
     Dosage: HALF DOSE
     Route: 042
  5. ISONIAZID [Suspect]
     Indication: ANTIBIOTIC PROPHYLAXIS
     Route: 065
  6. ENCORTON [Concomitant]
     Indication: RHEUMATOID ARTHRITIS
     Route: 048
  7. DIAPREL MR [Concomitant]
     Indication: DIABETES MELLITUS
     Route: 048
  8. POLPRAZOL [Concomitant]
     Indication: PEPTIC ULCER
     Route: 048
  9. ENARENAL [Concomitant]
     Indication: HYPERTENSION
     Route: 048

REACTIONS (3)
  - Neutropenia [Recovered/Resolved]
  - Leukopenia [Recovering/Resolving]
  - Anaemia [Recovering/Resolving]
